FAERS Safety Report 12058259 (Version 1)
Quarter: 2016Q1

REPORT INFORMATION
  Report Type: Spontaneous
  Country: US (occurrence: None)
  Receive Date: 20160208
  Receipt Date: 20160208
  Transmission Date: 20160526
  Serious: Yes (Life-Threatening)
  Sender: FDA-Public Use
  Company Number: None

PATIENT
  Age: 36 Year
  Sex: Female
  Weight: 108.86 kg

DRUGS (2)
  1. GENERIC METOPROLOL XR 50MG (3 TABS) [Suspect]
     Active Substance: METOPROLOL SUCCINATE
     Indication: HYPERTENSION
     Dosage: 150MG NIGHTLY PO
     Route: 048
     Dates: start: 201212
  2. GENERIC METOPROLOL XR 50MG (3 TABS) [Suspect]
     Active Substance: METOPROLOL SUCCINATE
     Indication: TACHYCARDIA
     Dosage: 150MG NIGHTLY PO
     Route: 048
     Dates: start: 201212

REACTIONS (9)
  - Tremor [None]
  - Product substitution issue [None]
  - Tachycardia [None]
  - Bradycardia [None]
  - Palpitations [None]
  - Heart rate irregular [None]
  - Hyperhidrosis [None]
  - Sinus arrest [None]
  - Anxiety [None]

NARRATIVE: CASE EVENT DATE: 201212
